FAERS Safety Report 7446120-9 (Version None)
Quarter: 2011Q2

REPORT INFORMATION
  Report Type: 
  Country: None (occurrence: None)
  Receive Date: 20110429
  Receipt Date: 20110421
  Transmission Date: 20111010
  Serious: Yes (Hospitalization)
  Sender: FDA-Public Use
  Company Number: A0922493A

PATIENT
  Sex: Female
  Weight: 82 kg

DRUGS (5)
  1. SEPTRA [Concomitant]
     Route: 065
  2. XELODA [Suspect]
     Dosage: 2000MG TWICE PER DAY
     Route: 065
     Dates: start: 20110313
  3. NORVASC [Concomitant]
     Route: 065
  4. TYKERB [Suspect]
     Dosage: 1250MG PER DAY
     Route: 048
     Dates: start: 20110316
  5. TENORMIN [Concomitant]
     Route: 065

REACTIONS (2)
  - DIARRHOEA [None]
  - DEHYDRATION [None]
